FAERS Safety Report 21152807 (Version 2)
Quarter: 2025Q1

REPORT INFORMATION
  Report Type: Spontaneous
  Country: US (occurrence: US)
  Receive Date: 20220730
  Receipt Date: 20250129
  Transmission Date: 20250409
  Serious: No
  Sender: SANOFI AVENTIS
  Company Number: US-SA-SAC20220726001660

PATIENT
  Age: 32 Year
  Sex: Female
  Weight: 91.82 kg

DRUGS (5)
  1. DUPIXENT [Suspect]
     Active Substance: DUPILUMAB
     Indication: Dermatitis atopic
     Route: 058
     Dates: start: 202106
  2. DUPIXENT [Suspect]
     Active Substance: DUPILUMAB
     Indication: Dermatitis allergic
     Dosage: 300 MG, QOW
     Route: 058
  3. VITAMINS NOS [Concomitant]
     Active Substance: VITAMINS
     Dosage: DAILY
  4. ZYRTEC [Concomitant]
     Active Substance: CETIRIZINE HYDROCHLORIDE
  5. IBUPROFEN [Concomitant]
     Active Substance: IBUPROFEN

REACTIONS (5)
  - Dry skin [Recovering/Resolving]
  - Skin exfoliation [Recovering/Resolving]
  - Pruritus [Recovering/Resolving]
  - Eye pruritus [Not Recovered/Not Resolved]
  - Maternal exposure during pregnancy [Unknown]
